FAERS Safety Report 6094219-4 (Version None)
Quarter: 2009Q1

REPORT INFORMATION
  Report Type: 
  Country: None (occurrence: None)
  Receive Date: 20090226
  Receipt Date: 20090217
  Transmission Date: 20090719
  Serious: Yes (Hospitalization, Other)
  Sender: FDA-Public Use
  Company Number: PHBS2009AU00859

PATIENT
  Age: 62 Year
  Sex: Male

DRUGS (3)
  1. IMATINIB MESYLATE [Suspect]
     Indication: GASTROINTESTINAL STROMAL TUMOUR
     Dosage: 600 MG DAILY
  2. IMATINIB MESYLATE [Suspect]
     Dosage: 400 MG DAILY
  3. IMATINIB MESYLATE [Suspect]
     Dosage: 600 MG DAILY

REACTIONS (4)
  - ABDOMINAL MASS [None]
  - LAPAROTOMY [None]
  - METASTASES TO LIVER [None]
  - NEUTROPENIA [None]
